FAERS Safety Report 8287566-9 (Version None)
Quarter: 2012Q2

REPORT INFORMATION
  Report Type: 
  Country: None (occurrence: None)
  Receive Date: 20120416
  Receipt Date: 20120404
  Transmission Date: 20120825
  Serious: Yes (Death, Other)
  Sender: FDA-Public Use
  Company Number: PHHY2012SK030630

PATIENT
  Sex: Female

DRUGS (2)
  1. IBANDRONATE SODIUM [Suspect]
     Dosage: UNK
     Dates: start: 20061018
  2. ZOMETA [Suspect]
     Dosage: UNK
     Dates: start: 20061018

REACTIONS (2)
  - PATHOLOGICAL FRACTURE [None]
  - DEATH [None]
